FAERS Safety Report 9349253 (Version 2)
Quarter: 2013Q2

REPORT INFORMATION
  Report Type: Spontaneous
  Country: DE (occurrence: DE)
  Receive Date: 20130614
  Receipt Date: 20130626
  Transmission Date: 20140414
  Serious: Yes (Other)
  Sender: FDA-Public Use
  Company Number: DE-ABBOTT-13P-062-1102849-00

PATIENT
  Age: 31 Year
  Sex: Female
  Weight: 88 kg

DRUGS (5)
  1. HUMIRA [Suspect]
     Indication: COLITIS
     Dosage: FIRST WEEK
     Route: 058
  2. HUMIRA [Suspect]
     Dosage: SECOND WEEK
     Route: 058
  3. HUMIRA [Suspect]
     Dosage: THIRD WEEK
     Route: 058
  4. DECORTIN [Concomitant]
     Indication: PRODUCT USED FOR UNKNOWN INDICATION
  5. PANTOZOL (PANTOPRAZOLE) [Concomitant]
     Indication: PRODUCT USED FOR UNKNOWN INDICATION

REACTIONS (3)
  - C-reactive protein increased [Recovered/Resolved]
  - Pyrexia [Recovered/Resolved]
  - Leukopenia [Recovered/Resolved]
